FAERS Safety Report 8370024-0 (Version None)
Quarter: 2012Q2

REPORT INFORMATION
  Report Type: 
  Country: None (occurrence: None)
  Receive Date: 20120518
  Receipt Date: 20120514
  Transmission Date: 20120825
  Serious: Yes (Life-Threatening, Hospitalization, Other)
  Sender: FDA-Public Use
  Company Number: PHHY2008CA03439

PATIENT
  Sex: Female

DRUGS (4)
  1. CLOZARIL [Suspect]
     Indication: SCHIZOPHRENIA, PARANOID TYPE
     Dosage: 100 MG, BID
     Route: 048
     Dates: start: 19970728
  2. SEROQUEL [Concomitant]
     Dosage: 150 MG, BID
  3. CHEMOTHERAPEUTICS NOS [Concomitant]
  4. ATIVAN [Concomitant]

REACTIONS (17)
  - DIABETES MELLITUS [None]
  - TOXICITY TO VARIOUS AGENTS [None]
  - MYOCLONUS [None]
  - GASTRITIS [None]
  - PSYCHIATRIC DECOMPENSATION [None]
  - RENAL FAILURE [None]
  - METABOLIC ENCEPHALOPATHY [None]
  - ARTERIOVENOUS FISTULA SITE INFECTION [None]
  - PNEUMONIA [None]
  - DIABETES INSIPIDUS [None]
  - NEUTROPHIL COUNT DECREASED [None]
  - CONSTIPATION [None]
  - DYSLIPIDAEMIA [None]
  - WHITE BLOOD CELL COUNT DECREASED [None]
  - MULTIPLE MYELOMA [None]
  - HYPOTHYROIDISM [None]
  - CONVULSION [None]
